FAERS Safety Report 6726612-8 (Version None)
Quarter: 2010Q2

REPORT INFORMATION
  Report Type: 
  Country: None (occurrence: None)
  Receive Date: 20100514
  Receipt Date: 20100503
  Transmission Date: 20101027
  Serious: Yes (Death)
  Sender: FDA-Public Use
  Company Number: US-GENENTECH-301489

PATIENT

DRUGS (7)
  1. RITUXIMAB [Suspect]
     Indication: LYMPHOMA AIDS RELATED
     Dosage: 375 MG/M2, UNK
     Route: 042
  2. ETOPOSIDE [Suspect]
     Indication: LYMPHOMA AIDS RELATED
     Dosage: UNK
     Route: 042
  3. DOXORUBICIN HCL [Suspect]
     Indication: LYMPHOMA AIDS RELATED
     Dosage: UNK
     Route: 042
  4. VINCRISTINE [Suspect]
     Indication: LYMPHOMA AIDS RELATED
     Dosage: UNK
     Route: 042
  5. PREDNISONE [Suspect]
     Indication: LYMPHOMA AIDS RELATED
     Dosage: UNK
     Route: 048
  6. CYCLOPHOSPHAMIDE [Suspect]
     Indication: LYMPHOMA AIDS RELATED
     Dosage: UNK
     Route: 042
  7. FLUCONAZOLE [Concomitant]
     Indication: DRUG USE FOR UNKNOWN INDICATION
     Dosage: UNK
     Route: 048

REACTIONS (15)
  - ANAEMIA [None]
  - CACHEXIA [None]
  - CRYPTOSPORIDIOSIS INFECTION [None]
  - FEBRILE NEUTROPENIA [None]
  - HEPATITIS [None]
  - HYPOTENSION [None]
  - INFECTION [None]
  - JC VIRUS INFECTION [None]
  - MUCOSAL INFLAMMATION [None]
  - MULTI-ORGAN FAILURE [None]
  - NEUROPATHY PERIPHERAL [None]
  - NEUTROPENIA [None]
  - PYREXIA [None]
  - SEPSIS [None]
  - THROMBOCYTOPENIA [None]
